FAERS Safety Report 7324475-3 (Version None)
Quarter: 2011Q1

REPORT INFORMATION
  Report Type: 
  Country: None (occurrence: None)
  Receive Date: 20110203
  Receipt Date: 20101012
  Transmission Date: 20110831
  Serious: Yes (Other)
  Sender: FDA-Public Use
  Company Number: 019554

PATIENT
  Sex: Male

DRUGS (3)
  1. DILANTIN [Concomitant]
  2. KEPPRA [Suspect]
  3. TEGRETOL [Concomitant]

REACTIONS (3)
  - COELIAC DISEASE [None]
  - CONVULSION [None]
  - DRUG INEFFECTIVE [None]
